FAERS Safety Report 12290131 (Version 2)
Quarter: 2016Q2

REPORT INFORMATION
  Report Type: Spontaneous
  Country: BR (occurrence: BR)
  Receive Date: 20160421
  Receipt Date: 20160525
  Transmission Date: 20160815
  Serious: Yes (Other)
  Sender: FDA-Public Use
  Company Number: BR-GLAXOSMITHKLINE-BR2016GSK011740

PATIENT
  Sex: Female
  Weight: 73 kg

DRUGS (1)
  1. BENLYSTA [Suspect]
     Active Substance: BELIMUMAB
     Indication: SYSTEMIC LUPUS ERYTHEMATOSUS
     Dosage: UNK
     Dates: start: 20150914

REACTIONS (4)
  - Drug ineffective [Unknown]
  - Alopecia [Unknown]
  - Oral herpes [Recovered/Resolved]
  - Systemic lupus erythematosus [Not Recovered/Not Resolved]
